FAERS Safety Report 13349261 (Version 1)
Quarter: 2017Q1

REPORT INFORMATION
  Report Type: Spontaneous
  Country: US (occurrence: US)
  Receive Date: 20170320
  Receipt Date: 20170320
  Transmission Date: 20170428
  Serious: No
  Sender: FDA-Public Use
  Company Number: US-TEVA-746499USA

PATIENT
  Sex: Male

DRUGS (3)
  1. BENDEKA [Suspect]
     Active Substance: BENDAMUSTINE HYDROCHLORIDE
     Dosage: 70 OR 80 MG/M2
     Route: 065
  2. RITUXAN [Concomitant]
     Active Substance: RITUXIMAB
  3. TREANDA [Suspect]
     Active Substance: BENDAMUSTINE HYDROCHLORIDE
     Indication: PRODUCT USED FOR UNKNOWN INDICATION
     Dosage: 70 OR 80 MG/M2
     Route: 065

REACTIONS (3)
  - Renal disorder [Recovered/Resolved]
  - Back pain [Recovered/Resolved]
  - Blood creatinine increased [Recovered/Resolved]

NARRATIVE: CASE EVENT DATE: 201702
